FAERS Safety Report 13379300 (Version 1)
Quarter: 2017Q1

REPORT INFORMATION
  Report Type: Spontaneous
  Country: US (occurrence: US)
  Receive Date: 20170328
  Receipt Date: 20170328
  Transmission Date: 20170429
  Serious: No
  Sender: FDA-Public Use
  Company Number: US-ROCHE-GNE319683

PATIENT
  Sex: Female

DRUGS (3)
  1. ANTIHYPERTENSIVE DRUG NOS [Concomitant]
     Indication: HYPERTENSION
  2. XOLAIR [Suspect]
     Active Substance: OMALIZUMAB
     Indication: ASTHMA
     Dosage: 150 MG, 1/MONTH
     Route: 058
  3. CHOLESTEROL LOWERING DRUG NOS [Concomitant]
     Indication: BLOOD CHOLESTEROL INCREASED

REACTIONS (1)
  - Rash [Not Recovered/Not Resolved]
